FAERS Safety Report 4414124-6 (Version None)
Quarter: 2004Q3

REPORT INFORMATION
  Report Type: 
  Country: None (occurrence: None)
  Receive Date: 20040728
  Receipt Date: 20040713
  Transmission Date: 20050211
  Serious: Yes (Hospitalization)
  Sender: FDA-Public Use
  Company Number: 2004AP03679

PATIENT
  Age: 50 Year
  Sex: Female

DRUGS (5)
  1. NAROPIN [Suspect]
     Indication: NERVE BLOCK
     Dosage: 81 ML DAILY IV
     Route: 042
     Dates: start: 20040713
  2. CARBOCAIN [Suspect]
     Indication: NERVE BLOCK
     Dosage: 144 MG DAILY IV
     Route: 042
     Dates: start: 20040713
  3. SEVOFLURANE [Concomitant]
  4. NITROUS OXIDE [Concomitant]
  5. FENTANYL [Concomitant]

REACTIONS (1)
  - ATRIOVENTRICULAR BLOCK [None]
